FAERS Safety Report 13941820 (Version 1)
Quarter: 2017Q3

REPORT INFORMATION
  Report Type: Spontaneous
  Country: US (occurrence: None)
  Receive Date: 20170907
  Receipt Date: 20170907
  Transmission Date: 20171127
  Serious: Yes (Other)
  Sender: FDA-Public Use
  Company Number: None

PATIENT
  Age: 74 Year
  Sex: Male

DRUGS (1)
  1. PRALUENT [Suspect]
     Active Substance: ALIROCUMAB
     Indication: ARTERIOSCLEROSIS
     Route: 058
     Dates: start: 201703, end: 201705

REACTIONS (1)
  - Cerebrovascular accident [None]

NARRATIVE: CASE EVENT DATE: 201705
